FAERS Safety Report 7524772-2 (Version None)
Quarter: 2011Q2

REPORT INFORMATION
  Report Type: 
  Country: None (occurrence: None)
  Receive Date: 20110525
  Receipt Date: 20110518
  Transmission Date: 20111010
  Serious: Yes (Hospitalization)
  Sender: FDA-Public Use
  Company Number: 2011SP019699

PATIENT
  Age: 66 Year
  Sex: Female

DRUGS (1)
  1. TEMODAL [Suspect]
     Indication: GLIOBLASTOMA MULTIFORME
     Dosage: 140 MG,

REACTIONS (4)
  - VOMITING [None]
  - PULMONARY EMBOLISM [None]
  - NAUSEA [None]
  - DISEASE COMPLICATION [None]
